FAERS Safety Report 6363158-3 (Version None)
Quarter: 2009Q3

REPORT INFORMATION
  Report Type: 
  Country: None (occurrence: None)
  Receive Date: 20090919
  Receipt Date: 20090619
  Transmission Date: 20100115
  Serious: No
  Sender: FDA-Public Use
  Company Number: US-ABBOTT-09P-163-0581344-00

PATIENT
  Sex: Male
  Weight: 31.78 kg

DRUGS (4)
  1. HUMIRA [Suspect]
     Indication: JUVENILE ARTHRITIS
     Dosage: PRESCRIBING MD STRETCHED OUT DOSES AND VARIED DOES DEPENDING ON FLARING.
     Route: 058
     Dates: start: 20070101
  2. HUMIRA [Suspect]
     Indication: UVEITIS
     Route: 058
  3. HUMIRA [Suspect]
     Indication: PSORIATIC ARTHROPATHY
     Route: 058
  4. HUMIRA [Suspect]
     Route: 058

REACTIONS (2)
  - ARTHRITIS [None]
  - VISUAL IMPAIRMENT [None]
